FAERS Safety Report 5928487-3 (Version None)
Quarter: 2008Q4

REPORT INFORMATION
  Report Type: 
  Country: None (occurrence: None)
  Receive Date: 20081020
  Receipt Date: 20081006
  Transmission Date: 20090506
  Serious: Yes (Life-Threatening, Hospitalization)
  Sender: FDA-Public Use
  Company Number: DSA_32492_2008

PATIENT
  Age: 55 Year
  Sex: Female

DRUGS (6)
  1. LORAZEPAM [Suspect]
     Indication: DRUG USE FOR UNKNOWN INDICATION
     Dosage: (1.5 MG QD ORAL), (2 MG QD ORAL)
     Route: 048
     Dates: start: 20050405, end: 20050513
  2. LORAZEPAM [Suspect]
     Indication: DRUG USE FOR UNKNOWN INDICATION
     Dosage: (1.5 MG QD ORAL), (2 MG QD ORAL)
     Route: 048
     Dates: start: 20050501
  3. CLOZAPINE [Suspect]
     Indication: DRUG USE FOR UNKNOWN INDICATION
     Dosage: (12.5 MG QD ORAL), (50 MG QD ORAL)
     Route: 048
     Dates: start: 20050510, end: 20050510
  4. CLOZAPINE [Suspect]
     Indication: DRUG USE FOR UNKNOWN INDICATION
     Dosage: (12.5 MG QD ORAL), (50 MG QD ORAL)
     Route: 048
     Dates: start: 20050511, end: 20050513
  5. SOLIAN (SOLIAN - AMISULPRIDE) (NOT SPECIFIED) [Suspect]
     Indication: DRUG USE FOR UNKNOWN INDICATION
     Dosage: (400-600 MG PER DAY ORAL)
     Route: 048
     Dates: start: 20050429, end: 20050530
  6. ZYPREXA [Concomitant]

REACTIONS (2)
  - CARDIAC ARREST [None]
  - VENTRICULAR FIBRILLATION [None]
